FAERS Safety Report 10166153 (Version 1)
Quarter: 2014Q2

REPORT INFORMATION
  Report Type: Spontaneous
  Country: FR (occurrence: FR)
  Receive Date: 20140512
  Receipt Date: 20140512
  Transmission Date: 20141212
  Serious: Yes (Other)
  Sender: FDA-Public Use
  Company Number: FR-BIOGENIDEC-2014BI043801

PATIENT
  Sex: Female

DRUGS (4)
  1. AVONEX [Suspect]
     Indication: RELAPSING-REMITTING MULTIPLE SCLEROSIS
     Route: 030
  2. VOLTARENE [Concomitant]
  3. LEVOTHYROX [Concomitant]
     Indication: HYPOTHYROIDISM
  4. ZOLPIDEM [Concomitant]
     Indication: INSOMNIA

REACTIONS (1)
  - Thyroidectomy [Unknown]
